FAERS Safety Report 13638799 (Version 1)
Quarter: 2017Q2

REPORT INFORMATION
  Report Type: Spontaneous
  Country: JP (occurrence: JP)
  Receive Date: 20170609
  Receipt Date: 20170609
  Transmission Date: 20170830
  Serious: Yes (Death, Hospitalization, Other)
  Sender: FDA-Public Use
  Company Number: JP-PFIZER INC-2017250488

PATIENT
  Age: 69 Year
  Sex: Female
  Weight: 60 kg

DRUGS (8)
  1. THYRADIN S [Concomitant]
     Active Substance: LEVOTHYROXINE SODIUM
  2. LANSOPRAZOLE. [Concomitant]
     Active Substance: LANSOPRAZOLE
  3. REBAMIPIDE [Concomitant]
     Active Substance: REBAMIPIDE
  4. AMLODIPINE [Concomitant]
     Active Substance: AMLODIPINE BESYLATE
  5. MICARDIS [Concomitant]
     Active Substance: TELMISARTAN
  6. RHEUMATREX [Suspect]
     Active Substance: METHOTREXATE SODIUM
     Indication: RHEUMATOID ARTHRITIS
     Dosage: 10 MG, WEEKLY
     Route: 048
  7. PREDNISOLONE. [Concomitant]
     Active Substance: PREDNISOLONE
  8. RECALBON [Concomitant]
     Active Substance: MINODRONIC ACID

REACTIONS (4)
  - Pancytopenia [Fatal]
  - Cerebral haemorrhage [Fatal]
  - Infection [Fatal]
  - Pneumocystis jirovecii pneumonia [Unknown]

NARRATIVE: CASE EVENT DATE: 20170516
